FAERS Safety Report 9629448 (Version 3)
Quarter: 2014Q1

REPORT INFORMATION
  Report Type: Spontaneous
  Country: TR (occurrence: TR)
  Receive Date: 20131017
  Receipt Date: 20140102
  Transmission Date: 20141002
  Serious: Yes (Hospitalization, Other)
  Sender: FDA-Public Use
  Company Number: TR-VERTEX PHARMACEUTICALS INC-2013-010436

PATIENT
  Sex: 0

DRUGS (5)
  1. INCIVO [Suspect]
     Indication: CHRONIC HEPATITIS C
     Dosage: 1125 MG, BID
  2. INCIVO [Suspect]
     Dates: start: 201302
  3. PEGINTERFERON ALFA 2A [Suspect]
     Indication: CHRONIC HEPATITIS C
     Dosage: 180 ?G, UNK
  4. PEGINTERFERON ALFA 2A [Suspect]
     Dosage: 180 ?G, UNK
     Dates: start: 201302
  5. RIBAVIRIN [Suspect]
     Indication: CHRONIC HEPATITIS C
     Dates: start: 201302

REACTIONS (3)
  - Pneumonia [Unknown]
  - Urinary tract infection [Unknown]
  - Skin lesion [Unknown]
